FAERS Safety Report 8023695-2 (Version None)
Quarter: 2012Q1

REPORT INFORMATION
  Report Type: 
  Country: None (occurrence: None)
  Receive Date: 20120103
  Receipt Date: 20120103
  Transmission Date: 20120608
  Serious: Yes (Hospitalization)
  Sender: FDA-Public Use
  Company Number: None

PATIENT
  Sex: Male
  Weight: 80.6 kg

DRUGS (2)
  1. CISPLATIN [Suspect]
     Dosage: 159 MG
  2. ETOPOSIDE [Suspect]
     Dosage: 597 MG

REACTIONS (4)
  - SINUS TACHYCARDIA [None]
  - PULMONARY EMBOLISM [None]
  - FEBRILE NEUTROPENIA [None]
  - ATRIAL FLUTTER [None]
